FAERS Safety Report 20149781 (Version 3)
Quarter: 2022Q2

REPORT INFORMATION
  Report Type: Spontaneous
  Country: US (occurrence: US)
  Receive Date: 20211206
  Receipt Date: 20220613
  Transmission Date: 20220721
  Serious: Yes (Disabling, Other)
  Sender: FDA-Public Use
  Company Number: US-SA-SAC20211203000200

PATIENT
  Age: 22 Year
  Sex: Female

DRUGS (11)
  1. DUPIXENT [Suspect]
     Active Substance: DUPILUMAB
     Indication: Dermatitis atopic
     Dosage: 300 MG, QOW
     Route: 058
     Dates: start: 20180418
  2. NORTRIPTYLINE HYDROCHLORIDE [Concomitant]
     Active Substance: NORTRIPTYLINE HYDROCHLORIDE
  3. VITAMIN D2 [Concomitant]
     Active Substance: ERGOCALCIFEROL
  4. RIZATRIPTAN [Concomitant]
     Active Substance: RIZATRIPTAN
  5. MONTELUKAST SODIUM [Concomitant]
     Active Substance: MONTELUKAST SODIUM
  6. MAGNESIUM OXIDE [Concomitant]
     Active Substance: MAGNESIUM OXIDE
  7. FLOVENT [Concomitant]
     Active Substance: FLUTICASONE PROPIONATE
     Dosage: 1MG
  8. DESOXIMETASONE [Concomitant]
     Active Substance: DESOXIMETASONE
  9. BIOTIN [Concomitant]
     Active Substance: BIOTIN
  10. MUCINEX [Concomitant]
     Active Substance: GUAIFENESIN
  11. ETHINYL ESTRADIOL\NORETHINDRONE ACETATE [Concomitant]
     Active Substance: ETHINYL ESTRADIOL\NORETHINDRONE ACETATE
     Dosage: UNK; 1MG-20(21) TABLET

REACTIONS (8)
  - Pneumonia [Unknown]
  - Bedridden [Unknown]
  - Non-Hodgkin^s lymphoma [Unknown]
  - Lymphadenopathy [Unknown]
  - Nasopharyngitis [Unknown]
  - Immune system disorder [Unknown]
  - Malaise [Unknown]
  - SARS-CoV-2 test positive [Unknown]

NARRATIVE: CASE EVENT DATE: 20211001
